FAERS Safety Report 8550089-3 (Version None)
Quarter: 2012Q3

REPORT INFORMATION
  Report Type: 
  Country: None (occurrence: None)
  Receive Date: 20120718
  Receipt Date: 20120705
  Transmission Date: 20120928
  Serious: Yes (Other)
  Sender: FDA-Public Use
  Company Number: AUR-APL-2012-02948

PATIENT
  Age: 62 Year
  Sex: Female
  Weight: 90.7194 kg

DRUGS (5)
  1. VIVELLE PATCH (ESTRADIOL) [Concomitant]
  2. INSULIN (INSULIN) [Concomitant]
  3. GABAPENTIN [Suspect]
     Indication: NEUROPATHY PERIPHERAL
     Dosage: 600 MG (600 MG, 1 IN 1 D), ORAL
     Route: 048
     Dates: start: 20120501
  4. FOSINOPRIL SODIUM [Concomitant]
  5. ASPIRIN [Concomitant]

REACTIONS (3)
  - SUICIDAL IDEATION [None]
  - ANGER [None]
  - PRODUCT SUBSTITUTION ISSUE [None]
